FAERS Safety Report 7035704-8 (Version None)
Quarter: 2010Q4

REPORT INFORMATION
  Report Type: 
  Country: None (occurrence: None)
  Receive Date: 20101008
  Receipt Date: 20100930
  Transmission Date: 20110411
  Serious: Yes (Hospitalization, Other)
  Sender: FDA-Public Use
  Company Number: BE-ABBOTT-10P-013-0631944-01

PATIENT
  Sex: Female

DRUGS (8)
  1. HUMIRA [Suspect]
     Indication: CROHN'S DISEASE
     Route: 058
     Dates: start: 20080331, end: 20100222
  2. HUMIRA [Suspect]
     Route: 058
     Dates: start: 20100528
  3. LORMETAZEPAM [Concomitant]
     Indication: ANXIETY
     Dates: start: 20080401
  4. LORMETAZEPAM [Concomitant]
     Dates: start: 20091201
  5. ISOBETADINE [Concomitant]
     Indication: FEMALE GENITAL TRACT FISTULA
     Dosage: 1 HIP BATH THREE TIMES DAILY
     Dates: start: 20091207
  6. AZATHIOPRINE [Concomitant]
     Indication: CROHN'S DISEASE
     Dosage: 100 MG HIGHEST MAINTAINED DOSE, DAILY
  7. CLEXANE [Concomitant]
     Indication: THROMBOSIS PROPHYLAXIS
     Dates: start: 20100303, end: 20100405
  8. PARACETAMOL [Concomitant]
     Indication: PROCEDURAL PAIN
     Dates: start: 20100303, end: 20100401

REACTIONS (2)
  - SEPSIS [None]
  - SUTURE RELATED COMPLICATION [None]
